FAERS Safety Report 5533290-2 (Version None)
Quarter: 2007Q4

REPORT INFORMATION
  Report Type: 
  Country: None (occurrence: None)
  Receive Date: 20071130
  Receipt Date: 20071130
  Transmission Date: 20080405
  Serious: Yes (Death, Life-Threatening, Hospitalization)
  Sender: FDA-Public Use
  Company Number: None

PATIENT
  Age: 70 Year
  Sex: Male

DRUGS (10)
  1. WARFARIN SODIUM [Suspect]
     Dosage: 15MG  DAILY  PO
     Route: 048
  2. LOVENOX [Suspect]
     Dosage: 100MG  Q12H  SQ
     Route: 058
  3. AMLODIPINE [Concomitant]
  4. COREG [Concomitant]
  5. SURFAK [Concomitant]
  6. PHOSLO [Concomitant]
  7. ZOLOFT [Concomitant]
  8. LANTUS [Concomitant]
  9. PROVENTIL [Concomitant]
  10. RESTORIL [Concomitant]

REACTIONS (4)
  - BRAIN HERNIATION [None]
  - FALL [None]
  - LOSS OF CONSCIOUSNESS [None]
  - SUBDURAL HAEMATOMA [None]
